FAERS Safety Report 6239425-0 (Version None)
Quarter: 2009Q2

REPORT INFORMATION
  Report Type: 
  Country: None (occurrence: None)
  Receive Date: 20090618
  Receipt Date: 20090618
  Transmission Date: 20091009
  Serious: No
  Sender: FDA-Public Use
  Company Number: None

PATIENT
  Age: 53 Year
  Sex: Male
  Weight: 113.3993 kg

DRUGS (2)
  1. ZICAM GEL TECH FROM PHEONIX [Suspect]
     Indication: NASOPHARYNGITIS
     Dosage: SPRAY IN NOSE EVERY 4 HOURS NASAL
     Route: 045
     Dates: start: 20090103, end: 20090105
  2. ZICAM GEL TECH FROM PHEONIX [Suspect]
     Indication: SINUSITIS
     Dosage: SPRAY IN NOSE EVERY 4 HOURS NASAL
     Route: 045
     Dates: start: 20090103, end: 20090105

REACTIONS (3)
  - AGEUSIA [None]
  - ANOSMIA [None]
  - NERVE INJURY [None]
